FAERS Safety Report 25673962 (Version 2)
Quarter: 2025Q3

REPORT INFORMATION
  Report Type: Spontaneous
  Country: US (occurrence: US)
  Receive Date: 20250813
  Receipt Date: 20250902
  Transmission Date: 20251021
  Serious: Yes (Hospitalization)
  Sender: TEVA
  Company Number: US-TEVA-VS-3360022

PATIENT
  Age: 62 Year
  Sex: Male

DRUGS (2)
  1. DEXAMETHASONE [Suspect]
     Active Substance: DEXAMETHASONE
     Indication: Pneumothorax
     Route: 065
  2. BOTOX [Suspect]
     Active Substance: ONABOTULINUMTOXINA
     Indication: Oesophageal dilation procedure
     Route: 065

REACTIONS (4)
  - Pneumothorax [Recovered/Resolved]
  - Administration site extravasation [Unknown]
  - Vocal cord paralysis [Unknown]
  - Drug ineffective [Unknown]
